FAERS Safety Report 4741942-7 (Version None)
Quarter: 2005Q3

REPORT INFORMATION
  Report Type: 
  Country: None (occurrence: None)
  Receive Date: 20050801
  Receipt Date: 20050616
  Transmission Date: 20060218
  Serious: No
  Sender: FDA-Public Use
  Company Number: 2005PV000049

PATIENT
  Sex: Female

DRUGS (17)
  1. BYETTA [Suspect]
     Indication: DIABETES MELLITUS NON-INSULIN-DEPENDENT
     Dosage: 5 UG;BID;SC
     Route: 058
     Dates: start: 20050610, end: 20050613
  2. OXYGEN [Concomitant]
  3. NORVASC [Concomitant]
  4. REGLAN [Concomitant]
  5. METFORMIN [Concomitant]
  6. AVANDIA [Concomitant]
  7. LANTUS [Concomitant]
  8. CARDIZEM [Concomitant]
  9. ZOCOR [Concomitant]
  10. PROTONIX [Concomitant]
  11. DIGOXIN [Concomitant]
  12. VALIUM [Concomitant]
  13. KLOR-CON [Concomitant]
  14. SEDAPAP [Concomitant]
  15. FUROSEMIDE [Concomitant]
  16. METOPRAM [Concomitant]
  17. NEBULIZER [Concomitant]

REACTIONS (2)
  - FATIGUE [None]
  - HYPOGLYCAEMIA [None]
